FAERS Safety Report 15917580 (Version 1)
Quarter: 2019Q1

REPORT INFORMATION
  Report Type: Report from Study
  Country: US (occurrence: US)
  Receive Date: 20190205
  Receipt Date: 20190205
  Transmission Date: 20190417
  Serious: Yes (Hospitalization)
  Sender: FDA-Public Use
  Company Number: US-SA-2018SA295594

PATIENT
  Age: 81 Year
  Sex: Female

DRUGS (1)
  1. DRONEDARONE [Suspect]
     Active Substance: DRONEDARONE
     Dosage: 400 MG, BID
     Route: 048

REACTIONS (1)
  - Urinary tract infection [Not Recovered/Not Resolved]
